FAERS Safety Report 10271444 (Version 3)
Quarter: 2014Q3

REPORT INFORMATION
  Report Type: Spontaneous
  Country: BR (occurrence: BR)
  Receive Date: 20140701
  Receipt Date: 20140710
  Transmission Date: 20150326
  Serious: Yes (Hospitalization, Other)
  Sender: FDA-Public Use
  Company Number: BR-VERTEX PHARMACEUTICALS INC-2014-000757

PATIENT
  Weight: 56 kg

DRUGS (3)
  1. PEGYLATED INTERFERON ALPHA NOS [Concomitant]
     Active Substance: PEGINTERFERON ALFA-2A OR PEGINTERFERON ALFA-2B
     Indication: PRODUCT USED FOR UNKNOWN INDICATION
     Dosage: UNK
     Route: 065
     Dates: start: 201312, end: 2014
  2. INCIVO [Suspect]
     Active Substance: TELAPREVIR
     Indication: CHRONIC HEPATITIS C
     Dosage: UNK
     Route: 048
     Dates: start: 20140102, end: 20140326
  3. RIBAVIRIN. [Concomitant]
     Active Substance: RIBAVIRIN
     Indication: PRODUCT USED FOR UNKNOWN INDICATION
     Dosage: UNK
     Route: 065
     Dates: start: 201312, end: 2014

REACTIONS (12)
  - Anaemia [Unknown]
  - Anorectal discomfort [Unknown]
  - Lymphoma [Unknown]
  - Sepsis [Recovered/Resolved]
  - Hypothyroidism [Unknown]
  - Hepatic cirrhosis [Unknown]
  - Lymphadenopathy [Unknown]
  - Laryngeal oedema [Unknown]
  - Cataract [Unknown]
  - Drug reaction with eosinophilia and systemic symptoms [Recovering/Resolving]
  - Type 1 diabetes mellitus [Unknown]
  - Osteoporosis [Unknown]

NARRATIVE: CASE EVENT DATE: 2014
